FAERS Safety Report 16751794 (Version 1)
Quarter: 2019Q3

REPORT INFORMATION
  Report Type: Spontaneous
  Country: CN (occurrence: CN)
  Receive Date: 20190828
  Receipt Date: 20190828
  Transmission Date: 20191005
  Serious: Yes (Life-Threatening, Other)
  Sender: FDA-Public Use
  Company Number: CN-IMPAX LABORATORIES, LLC-2019-IPXL-01723

PATIENT
  Sex: Male
  Weight: 2 kg

DRUGS (9)
  1. HYDROCORTISONE. [Suspect]
     Active Substance: HYDROCORTISONE
     Indication: SEPTIC SHOCK
  2. HYDROCORTISONE. [Suspect]
     Active Substance: HYDROCORTISONE
     Indication: CIRCULATORY COLLAPSE
     Dosage: 2 MILLIGRAM/KILOGRAM, EVERY 8HR
     Route: 042
  3. ALBUMIN [Concomitant]
     Active Substance: ALBUMIN HUMAN
     Indication: HYPERBILIRUBINAEMIA
     Dosage: 2 GRAM TOTAL DOSE
     Route: 065
  4. EPINEPHRINE. [Concomitant]
     Active Substance: EPINEPHRINE
     Indication: PRODUCT USED FOR UNKNOWN INDICATION
     Dosage: UNK
     Route: 065
  5. DOPAMINE [Concomitant]
     Active Substance: DOPAMINE HYDROCHLORIDE
     Indication: PRODUCT USED FOR UNKNOWN INDICATION
     Dosage: UNK
     Route: 065
  6. NITRIC OXIDE. [Concomitant]
     Active Substance: NITRIC OXIDE
     Indication: NEWBORN PERSISTENT PULMONARY HYPERTENSION
     Dosage: UNK
  7. POTASSIUM [Concomitant]
     Active Substance: POTASSIUM
     Indication: HYPOKALAEMIA
     Dosage: 0.3MMOL/KG/H
     Route: 042
  8. POTASSIUM [Concomitant]
     Active Substance: POTASSIUM
     Dosage: 4 MMOL/KG/D
     Route: 048
  9. PULMONARY SURFACTANT NOS [Concomitant]
     Indication: NEWBORN PERSISTENT PULMONARY HYPERTENSION
     Dosage: 2 DOSAGE FORM
     Route: 065

REACTIONS (2)
  - Hypertension neonatal [Recovered/Resolved]
  - Hypertrophic cardiomyopathy [Recovered/Resolved]
